FAERS Safety Report 9311160 (Version 2)
Quarter: 2013Q4

REPORT INFORMATION
  Report Type: Spontaneous
  Country: US (occurrence: US)
  Receive Date: 20130528
  Receipt Date: 20131108
  Transmission Date: 20140711
  Serious: Yes (Other)
  Sender: FDA-Public Use
  Company Number: US-BAYER-2013-062856

PATIENT
  Age: 24 Year
  Sex: Female
  Weight: 65.76 kg

DRUGS (5)
  1. MIRENA [Suspect]
     Indication: CONTRACEPTION
     Dosage: 20 MCG/24HR, CONT
     Route: 015
     Dates: start: 200707, end: 20101113
  2. LORTAB [Concomitant]
  3. MOTRIN [Concomitant]
  4. KEFLEX [Concomitant]
  5. ANCEF [Concomitant]
     Dosage: 2 G, UNK

REACTIONS (9)
  - Device dislocation [None]
  - Embedded device [None]
  - Injury [None]
  - Device issue [None]
  - Device difficult to use [None]
  - Procedural pain [None]
  - Scar [None]
  - Anxiety [None]
  - Stress [None]
